FAERS Safety Report 12281800 (Version 3)
Quarter: 2016Q3

REPORT INFORMATION
  Report Type: Spontaneous
  Country: US (occurrence: US)
  Receive Date: 20160419
  Receipt Date: 20160831
  Transmission Date: 20161109
  Serious: Yes (Other)
  Sender: FDA-Public Use
  Company Number: US-TEVA-645594USA

PATIENT
  Age: 42 Year
  Sex: Female

DRUGS (2)
  1. ZECUITY [Suspect]
     Active Substance: SUMATRIPTAN SUCCINATE
     Route: 062
     Dates: start: 20160318, end: 20160318
  2. ZECUITY [Suspect]
     Active Substance: SUMATRIPTAN SUCCINATE
     Indication: MIGRAINE
     Route: 062
     Dates: start: 2016, end: 2016

REACTIONS (15)
  - Application site irritation [Not Recovered/Not Resolved]
  - Application site swelling [Unknown]
  - Application site pain [Unknown]
  - Application site burn [Not Recovered/Not Resolved]
  - Wrong technique in product usage process [Unknown]
  - Application site erythema [Not Recovered/Not Resolved]
  - Application site pruritus [Not Recovered/Not Resolved]
  - Application site paraesthesia [Not Recovered/Not Resolved]
  - Application site papules [Not Recovered/Not Resolved]
  - Application site vesicles [Not Recovered/Not Resolved]
  - Application site discolouration [Not Recovered/Not Resolved]
  - Drug effect incomplete [Unknown]
  - Product leakage [Unknown]
  - Application site scar [Not Recovered/Not Resolved]
  - Incorrect drug administration duration [Unknown]

NARRATIVE: CASE EVENT DATE: 2016
